FAERS Safety Report 5849709-3 (Version None)
Quarter: 2008Q3

REPORT INFORMATION
  Report Type: 
  Country: None (occurrence: None)
  Receive Date: 20080818
  Receipt Date: 20080818
  Transmission Date: 20090109
  Serious: Yes (Hospitalization)
  Sender: FDA-Public Use
  Company Number: None

PATIENT
  Sex: Male
  Weight: 58.7 kg

DRUGS (2)
  1. PHENYTOIN [Suspect]
     Indication: CONVULSION
     Dosage: 300MG EVERY NIGHT BY MOUTH
     Route: 048
     Dates: start: 20080604, end: 20080709
  2. KEPPRA [Suspect]
     Indication: CONVULSION
     Dosage: 1500MG TWICE DAILY BY MOUTH
     Route: 048
     Dates: start: 20080627

REACTIONS (8)
  - BURNING SENSATION [None]
  - DRY SKIN [None]
  - FEELING ABNORMAL [None]
  - LIVER FUNCTION TEST ABNORMAL [None]
  - PHOTOSENSITIVITY REACTION [None]
  - RASH MACULAR [None]
  - SEDATION [None]
  - SKIN EXFOLIATION [None]
